FAERS Safety Report 4972054-5 (Version None)
Quarter: 2006Q2

REPORT INFORMATION
  Report Type: 
  Country: None (occurrence: None)
  Receive Date: 20060407
  Receipt Date: 20060327
  Transmission Date: 20061013
  Serious: Yes (Life-Threatening, Hospitalization, Disabling, Other)
  Sender: FDA-Public Use
  Company Number: 2006042385

PATIENT
  Age: 21 Year
  Sex: Female

DRUGS (6)
  1. IRINOTECAN HCL [Suspect]
     Indication: EPENDYMOMA
     Dosage: 50 MG/M2 CYCLIC INTERVAL : 5 DAYS/WEEK, INTRAVENOUS
     Route: 042
     Dates: start: 20060101, end: 20060101
  2. KEPPRA [Concomitant]
  3. BACTRIM [Concomitant]
  4. DIFLUCAN [Concomitant]
  5. ERLOTINIB [Concomitant]
  6. DECADRON [Concomitant]

REACTIONS (13)
  - ABASIA [None]
  - ANOREXIA [None]
  - CONVULSION [None]
  - DEVICE RELATED INFECTION [None]
  - DIARRHOEA HAEMORRHAGIC [None]
  - FALL [None]
  - INFUSION RELATED REACTION [None]
  - INTRACRANIAL PRESSURE INCREASED [None]
  - MUSCLE SPASMS [None]
  - NERVOUS SYSTEM DISORDER [None]
  - QUADRIPLEGIA [None]
  - TREMOR [None]
  - VOMITING [None]
